FAERS Safety Report 8096480-3 (Version None)
Quarter: 2012Q1

REPORT INFORMATION
  Report Type: 
  Country: None (occurrence: None)
  Receive Date: 20120129
  Receipt Date: 20111220
  Transmission Date: 20120608
  Serious: No
  Sender: FDA-Public Use
  Company Number: US-ABBOTT-11P-163-0885498-00

PATIENT
  Age: 56 Year
  Sex: Female

DRUGS (7)
  1. TRIAMTERENE [Concomitant]
     Indication: HYPERTENSION
  2. DILAUDID [Concomitant]
     Indication: PRODUCT USED FOR UNKNOWN INDICATION
  3. HUMIRA [Suspect]
     Indication: RHEUMATOID ARTHRITIS
     Dates: start: 20111001
  4. LOSARTAN POTASSIUM [Concomitant]
     Indication: PRODUCT USED FOR UNKNOWN INDICATION
  5. FLEXERIL [Concomitant]
     Indication: PRODUCT USED FOR UNKNOWN INDICATION
  6. STEROIDS [Concomitant]
     Indication: PRODUCT USED FOR UNKNOWN INDICATION
  7. IBUPROFEN [Concomitant]
     Indication: ARTHRALGIA

REACTIONS (3)
  - MUSCLE SPASMS [None]
  - SENSATION OF HEAVINESS [None]
  - GAIT DISTURBANCE [None]
